FAERS Safety Report 4809338-7 (Version None)
Quarter: 2005Q4

REPORT INFORMATION
  Report Type: 
  Country: None (occurrence: None)
  Receive Date: 20051025
  Receipt Date: 20051007
  Transmission Date: 20060501
  Serious: Yes (Other)
  Sender: FDA-Public Use
  Company Number: AU-ABBOTT-05P-008-0313172-00

PATIENT
  Sex: Female

DRUGS (2)
  1. EPILIM [Suspect]
     Indication: MENTAL DISORDER
     Route: 048
     Dates: start: 19950101, end: 20050801
  2. CLOZAPINE [Suspect]
     Indication: MENTAL DISORDER

REACTIONS (4)
  - HEPATIC FUNCTION ABNORMAL [None]
  - HEPATOMEGALY [None]
  - PLATELET COUNT DECREASED [None]
  - WHITE BLOOD CELL COUNT ABNORMAL [None]
